FAERS Safety Report 7230822-3 (Version None)
Quarter: 2011Q1

REPORT INFORMATION
  Report Type: 
  Country: None (occurrence: None)
  Receive Date: 20110118
  Receipt Date: 20110106
  Transmission Date: 20110831
  Serious: Yes (Hospitalization)
  Sender: FDA-Public Use
  Company Number: US-ELI_LILLY_AND_COMPANY-US201010003240

PATIENT
  Sex: Female
  Weight: 149.66 kg

DRUGS (12)
  1. PRASUGREL HYDROCHLORIDE [Suspect]
     Dosage: 10 MG, DAILY (1/D)
     Dates: start: 20100423
  2. LISINOPRIL AND HYDROCHLOROTHIAZIDE [Concomitant]
     Indication: HYPERTENSION
     Dosage: 20/25 MG, DAILY (1/D)
     Route: 048
  3. ASPIRIN [Concomitant]
     Indication: ANTIPLATELET THERAPY
     Dosage: 325 MG, DAILY (1/D)
     Dates: start: 20100422
  4. CRESTOR [Concomitant]
     Indication: HYPERLIPIDAEMIA
     Dosage: 20 MG, DAILY (1/D)
     Route: 048
  5. ALLEGRA [Concomitant]
     Indication: HYPERSENSITIVITY
     Dosage: 180 MG, DAILY (1/D)
     Route: 048
  6. THYROID TAB [Concomitant]
     Indication: HYPOTHYROIDISM
     Dosage: 90 MG, DAILY (1/D)
     Route: 048
  7. JANUVIA [Concomitant]
     Indication: DIABETES MELLITUS
     Dosage: 100 MG, DAILY (1/D)
     Route: 048
  8. LEXAPRO [Concomitant]
     Indication: DEPRESSION
     Dosage: 20 MG, DAILY (1/D)
     Route: 048
  9. PROTONIX [Concomitant]
     Indication: GASTROOESOPHAGEAL REFLUX DISEASE
     Dosage: 80 MG, DAILY (1/D)
     Route: 048
  10. PRASUGREL HYDROCHLORIDE [Suspect]
     Indication: ACUTE CORONARY SYNDROME
     Dosage: 60 MG, ONCE
     Dates: start: 20100422, end: 20100422
  11. NITROGLYCERIN [Concomitant]
     Indication: ANGINA PECTORIS
     Dosage: 0.4 MG,PRN
     Route: 060
  12. ACTOS [Concomitant]
     Indication: DIABETES MELLITUS
     Dosage: 15 MG, DAILY (1/D)
     Route: 048

REACTIONS (2)
  - NON-CARDIAC CHEST PAIN [None]
  - DIVERTICULITIS [None]
